FAERS Safety Report 6821225-1 (Version None)
Quarter: 2010Q3

REPORT INFORMATION
  Report Type: 
  Country: None (occurrence: None)
  Receive Date: 20100707
  Receipt Date: 20080604
  Transmission Date: 20110219
  Serious: No
  Sender: FDA-Public Use
  Company Number: US-PFIZER INC-2008034863

PATIENT
  Sex: Male
  Weight: 72.7 kg

DRUGS (4)
  1. ZOLOFT [Suspect]
     Indication: DEPRESSION
     Dates: start: 20030101, end: 20080408
  2. TAMSULOSIN HYDROCHLORIDE [Concomitant]
  3. ZETIA [Concomitant]
  4. DETROL LA [Concomitant]

REACTIONS (1)
  - DRY MOUTH [None]
